FAERS Safety Report 24629723 (Version 1)
Quarter: 2024Q4

REPORT INFORMATION
  Report Type: Spontaneous
  Country: JP (occurrence: JP)
  Receive Date: 20241118
  Receipt Date: 20241118
  Transmission Date: 20250114
  Serious: Yes (Death)
  Sender: AMGEN
  Company Number: JP-AMGEN-JPNSP2024223118

PATIENT

DRUGS (1)
  1. CINACALCET HYDROCHLORIDE [Suspect]
     Active Substance: CINACALCET HYDROCHLORIDE
     Indication: Chronic kidney disease-mineral and bone disorder
     Dosage: UNK
     Route: 065

REACTIONS (7)
  - Hypophosphataemia [Fatal]
  - Cardiovascular disorder [Fatal]
  - Blood phosphorus increased [Fatal]
  - Blood albumin increased [Fatal]
  - Coronary artery disease [Fatal]
  - Haemorrhagic stroke [Fatal]
  - Off label use [Unknown]
